FAERS Safety Report 8123415-7 (Version None)
Quarter: 2012Q1

REPORT INFORMATION
  Report Type: 
  Country: None (occurrence: None)
  Receive Date: 20120208
  Receipt Date: 20120203
  Transmission Date: 20120608
  Serious: Yes (Other)
  Sender: FDA-Public Use
  Company Number: US-PFIZER INC-2012030895

PATIENT
  Sex: Female
  Weight: 36.281 kg

DRUGS (3)
  1. BISOPROLOL [Concomitant]
     Dosage: UNK
  2. DETROL LA [Suspect]
     Indication: HYPERTONIC BLADDER
     Dosage: 4 MG, DAILY
  3. ASPIRIN [Concomitant]
     Indication: ANTICOAGULANT THERAPY
     Dosage: 81 MG, 2X/DAY

REACTIONS (3)
  - HYPERKERATOSIS [None]
  - MYOCARDIAL INFARCTION [None]
  - POOR PERIPHERAL CIRCULATION [None]
